FAERS Safety Report 9668782 (Version 2)
Quarter: 2013Q4

REPORT INFORMATION
  Report Type: Spontaneous
  Country: NL (occurrence: NL)
  Receive Date: 20131105
  Receipt Date: 20131121
  Transmission Date: 20140711
  Serious: Yes (Life-Threatening, Hospitalization, Disabling, Other)
  Sender: FDA-Public Use
  Company Number: NL-009507513-1310NLD013890

PATIENT
  Age: 26 Year
  Sex: Female
  Weight: 90 kg

DRUGS (1)
  1. NUVARING [Suspect]
     Indication: CONTRACEPTION
     Dosage: 1 TIMES PER MONTH
     Route: 067
     Dates: start: 2006, end: 20100205

REACTIONS (2)
  - Cardiac failure acute [Recovering/Resolving]
  - Pulmonary embolism [Recovering/Resolving]
